FAERS Safety Report 7938650-8 (Version None)
Quarter: 2011Q4

REPORT INFORMATION
  Report Type: 
  Country: None (occurrence: None)
  Receive Date: 20111123
  Receipt Date: 20111116
  Transmission Date: 20120403
  Serious: Yes (Other)
  Sender: FDA-Public Use
  Company Number: JP-MERCK-1111USA02792

PATIENT
  Age: 4 Year
  Sex: Male

DRUGS (6)
  1. PULMICORT [Concomitant]
     Route: 065
  2. MUCODYNE [Concomitant]
     Route: 048
     Dates: start: 20100811
  3. MUCOSOLVAN [Concomitant]
     Route: 048
     Dates: start: 20100811
  4. SINGULAIR [Suspect]
     Indication: ASTHMA
     Route: 048
     Dates: start: 20100811, end: 20111001
  5. MEPTIN [Concomitant]
     Route: 048
     Dates: start: 20100811
  6. INTAL [Concomitant]
     Route: 055

REACTIONS (1)
  - PETIT MAL EPILEPSY [None]
